FAERS Safety Report 13509512 (Version 4)
Quarter: 2018Q4

REPORT INFORMATION
  Report Type: Spontaneous
  Country: US (occurrence: US)
  Receive Date: 20170503
  Receipt Date: 20181213
  Transmission Date: 20190204
  Serious: Yes (Other)
  Sender: FDA-Public Use
  Company Number: US-SA-2017SA035085

PATIENT
  Age: 75 Year
  Sex: Male

DRUGS (4)
  1. ALIROCUMAB PREFILLED PEN [Suspect]
     Active Substance: ALIROCUMAB
     Indication: HYPERLIPIDAEMIA
     Dosage: 75 MG, QOW
     Route: 058
     Dates: start: 20160524
  2. BRILINTA [Concomitant]
     Active Substance: TICAGRELOR
     Dosage: UNK
  3. PRALUENT [Suspect]
     Active Substance: ALIROCUMAB
     Indication: HYPERLIPIDAEMIA
     Dosage: 1 MG,QOW
     Route: 058
     Dates: start: 20160524
  4. MIDODRINE [Concomitant]
     Active Substance: MIDODRINE
     Dosage: UNK

REACTIONS (4)
  - Hip arthroplasty [Unknown]
  - Burning sensation [Unknown]
  - Pruritus generalised [Unknown]
  - Surgery [Unknown]

NARRATIVE: CASE EVENT DATE: 201701
